FAERS Safety Report 8588619-8 (Version None)
Quarter: 2012Q3

REPORT INFORMATION
  Report Type: 
  Country: None (occurrence: None)
  Receive Date: 20120813
  Receipt Date: 20120809
  Transmission Date: 20120928
  Serious: Yes (Death, Other)
  Sender: FDA-Public Use
  Company Number: PHEH2009US10768

PATIENT
  Sex: Male

DRUGS (13)
  1. ZOMETA [Suspect]
  2. PROSCAR [Concomitant]
  3. BACTRIM [Concomitant]
  4. XANAX [Concomitant]
  5. OXYCODONE HCL AND ACETAMINOPHEN [Concomitant]
  6. AREDIA [Suspect]
     Route: 042
  7. DEXAMETHASONE [Concomitant]
  8. NEXIUM [Concomitant]
  9. EFFEXOR [Concomitant]
  10. PROTONIX [Concomitant]
  11. REVLIMID [Concomitant]
  12. CYMBALTA [Concomitant]
  13. ASPIRIN [Concomitant]

REACTIONS (45)
  - OSTEITIS [None]
  - DYSPNOEA [None]
  - PULMONARY MASS [None]
  - RENAL CYST [None]
  - PERICARDIAL EFFUSION [None]
  - LEFT VENTRICULAR DYSFUNCTION [None]
  - CEREBRAL SMALL VESSEL ISCHAEMIC DISEASE [None]
  - OSTEONECROSIS OF JAW [None]
  - LYMPHADENOPATHY MEDIASTINAL [None]
  - OSTEOMYELITIS [None]
  - GINGIVITIS [None]
  - GINGIVAL BLEEDING [None]
  - MUSCULOSKELETAL DISCOMFORT [None]
  - OBSTRUCTIVE AIRWAYS DISORDER [None]
  - METASTASES TO BONE [None]
  - EXPOSED BONE IN JAW [None]
  - GASTRIC ULCER [None]
  - OSTEOARTHRITIS [None]
  - ISCHAEMIA [None]
  - VITH NERVE PARALYSIS [None]
  - TOOTH LOSS [None]
  - LUNG ADENOCARCINOMA STAGE III [None]
  - DIVERTICULUM OESOPHAGEAL [None]
  - COMPRESSION FRACTURE [None]
  - INTERVERTEBRAL DISC PROTRUSION [None]
  - PARAESTHESIA [None]
  - BARRETT'S OESOPHAGUS [None]
  - HEPATIC CYST [None]
  - TACHYCARDIA [None]
  - NODULE [None]
  - ADENOCARCINOMA [None]
  - HIATUS HERNIA [None]
  - RIB FRACTURE [None]
  - OSTEOPOROSIS [None]
  - SPINAL COLUMN STENOSIS [None]
  - PATHOLOGICAL FRACTURE [None]
  - PANCYTOPENIA [None]
  - CEREBRAL ATROPHY [None]
  - LACUNAR INFARCTION [None]
  - NEOPLASM MALIGNANT [None]
  - METASTASES TO ADRENALS [None]
  - GASTROOESOPHAGEAL REFLUX DISEASE [None]
  - OESOPHAGEAL ULCER [None]
  - MENTAL STATUS CHANGES [None]
  - DILATATION VENTRICULAR [None]
